FAERS Safety Report 15627671 (Version 2)
Quarter: 2018Q4

REPORT INFORMATION
  Report Type: Report from Study
  Country: JP (occurrence: JP)
  Receive Date: 20181116
  Receipt Date: 20181123
  Transmission Date: 20190205
  Serious: Yes (Hospitalization)
  Sender: FDA-Public Use
  Company Number: JP-PFIZER INC-2018463929

PATIENT
  Age: 66 Year
  Sex: Female
  Weight: 65.7 kg

DRUGS (16)
  1. PREDNISOLONE. [Suspect]
     Active Substance: PREDNISOLONE
     Dosage: 5 MG, DAILY
     Route: 048
     Dates: start: 20180628, end: 20180731
  2. PREDNISOLONE. [Suspect]
     Active Substance: PREDNISOLONE
     Dosage: 20 MG, DAILY
     Route: 048
     Dates: start: 20181010, end: 20181017
  3. PREDNISOLONE. [Suspect]
     Active Substance: PREDNISOLONE
     Indication: TROPICAL SPASTIC PARESIS
     Dosage: 30 MG, DAILY
     Route: 048
     Dates: start: 20180405, end: 20180418
  4. PREDNISOLONE. [Suspect]
     Active Substance: PREDNISOLONE
     Dosage: 20 MG, DAILY
     Route: 048
     Dates: start: 20180426, end: 20180502
  5. PREDNISOLONE. [Suspect]
     Active Substance: PREDNISOLONE
     Dosage: 25 MG, DAILY
     Route: 048
     Dates: start: 20180419, end: 20180425
  6. PREDNISOLONE. [Suspect]
     Active Substance: PREDNISOLONE
     Dosage: 10 MG, DAILY
     Route: 048
     Dates: start: 20180531, end: 20180627
  7. PREDNISOLONE. [Suspect]
     Active Substance: PREDNISOLONE
     Dosage: 30 MG, DAILY
     Route: 048
     Dates: start: 20180815, end: 20180911
  8. STAYBLA [Concomitant]
     Active Substance: IMIDAFENACIN
     Indication: POLLAKIURIA
     Dosage: 0.2 MG, 2X/DAY
     Route: 048
     Dates: end: 20161018
  9. NEXIUM [ESOMEPRAZOLE MAGNESIUM] [Concomitant]
     Indication: PROPHYLAXIS AGAINST GASTROINTESTINAL ULCER
     Dosage: 20 MG, 1X/DAY
     Route: 048
     Dates: start: 20180405
  10. BONALON [Concomitant]
     Active Substance: ALENDRONATE SODIUM
     Indication: OSTEOPOROSIS PROPHYLAXIS
     Dosage: 35 MG, WEEKLY
     Route: 048
     Dates: start: 20180405
  11. TIZANIDINE [TIZANIDINE HYDROCHLORIDE] [Concomitant]
     Indication: MUSCLE TIGHTNESS
     Dosage: 1 MG, 3X/DAY
     Route: 048
     Dates: end: 20181018
  12. PROSTANDIN [ALPROSTADIL ALFADEX] [Concomitant]
     Indication: DECUBITUS ULCER
     Dosage: AS NEEDED 1X/DAY
     Route: 061
     Dates: start: 20180919
  13. PREDNISOLONE. [Suspect]
     Active Substance: PREDNISOLONE
     Dosage: 15 MG, DAILY
     Route: 048
     Dates: start: 20180503, end: 20180530
  14. SOLU-MEDROL [Suspect]
     Active Substance: METHYLPREDNISOLONE SODIUM SUCCINATE
     Indication: TROPICAL SPASTIC PARESIS
     Dosage: 1000 MG, DAILY
     Route: 042
     Dates: start: 20180801, end: 20180803
  15. PREDNISOLONE. [Suspect]
     Active Substance: PREDNISOLONE
     Dosage: 32.5 MG, DAILY
     Route: 048
     Dates: start: 20180804, end: 20180814
  16. PREDNISOLONE. [Suspect]
     Active Substance: PREDNISOLONE
     Dosage: 25 MG, DAILY
     Route: 048
     Dates: start: 20180912, end: 20181009

REACTIONS (1)
  - Urinary tract infection [Recovered/Resolved]

NARRATIVE: CASE EVENT DATE: 20181018
